FAERS Safety Report 21931629 (Version 1)
Quarter: 2023Q1

REPORT INFORMATION
  Report Type: Spontaneous
  Country: US (occurrence: None)
  Receive Date: 20230130
  Receipt Date: 20230130
  Transmission Date: 20230418
  Serious: No
  Sender: FDA-Public Use
  Company Number: None

PATIENT
  Age: 38 Year
  Sex: Female
  Weight: 105.75 kg

DRUGS (6)
  1. MOUNJARO [Suspect]
     Active Substance: TIRZEPATIDE
     Indication: Glucose tolerance impaired
     Dosage: FREQUENCY : WEEKLY;?
     Route: 058
     Dates: start: 20220925, end: 20230129
  2. MOUNJARO [Concomitant]
     Active Substance: TIRZEPATIDE
  3. venalfaxine [Concomitant]
  4. IBUPROFEN [Concomitant]
     Active Substance: IBUPROFEN
  5. TUMS [Concomitant]
     Active Substance: CALCIUM CARBONATE
  6. TYLENOL EXTRA STRENGTH [Concomitant]

REACTIONS (6)
  - Injection site erythema [None]
  - Injection site swelling [None]
  - Injection site warmth [None]
  - Injection site pruritus [None]
  - Diarrhoea [None]
  - Pruritus [None]

NARRATIVE: CASE EVENT DATE: 20230115
